FAERS Safety Report 13239181 (Version 2)
Quarter: 2017Q1

REPORT INFORMATION
  Report Type: Spontaneous
  Country: AU (occurrence: AU)
  Receive Date: 20170216
  Receipt Date: 20170221
  Transmission Date: 20170428
  Serious: Yes (Hospitalization, Other)
  Sender: FDA-Public Use
  Company Number: AU-PFIZER INC-2017068049

PATIENT
  Sex: Female

DRUGS (1)
  1. LYRICA [Suspect]
     Active Substance: PREGABALIN
     Indication: SPINAL CORD INJURY
     Dosage: UNK

REACTIONS (9)
  - Psychiatric symptom [Unknown]
  - Vision blurred [Unknown]
  - Impaired driving ability [Unknown]
  - Activities of daily living impaired [Unknown]
  - Suicidal ideation [Unknown]
  - Dyspnoea [Unknown]
  - Hypoaesthesia [Unknown]
  - Delusion [Unknown]
  - Reading disorder [Unknown]
